FAERS Safety Report 9837557 (Version 6)
Quarter: 2014Q3

REPORT INFORMATION
  Report Type: Spontaneous
  Country: US (occurrence: US)
  Receive Date: 20140123
  Receipt Date: 20140725
  Transmission Date: 20150326
  Serious: Yes (Hospitalization, Other)
  Sender: FDA-Public Use
  Company Number: US-009507513-1206USA02653

PATIENT
  Sex: Female
  Weight: 99.32 kg

DRUGS (4)
  1. ALENDRONATE SODIUM. [Suspect]
     Active Substance: ALENDRONATE SODIUM
     Dosage: 70 MG, QW
     Route: 048
  2. FOSAMAX [Suspect]
     Active Substance: ALENDRONATE SODIUM
     Dosage: 70 MG, QW
     Route: 048
     Dates: start: 200109, end: 20090511
  3. FOSAMAX [Suspect]
     Active Substance: ALENDRONATE SODIUM
     Indication: OSTEOPOROSIS
     Dosage: 35 MG, UNK
     Route: 048
     Dates: start: 200103, end: 200109
  4. FOSAMAX [Suspect]
     Active Substance: ALENDRONATE SODIUM
     Indication: OSTEOPENIA
     Dosage: 5 MG, UNK
     Route: 048
     Dates: start: 199912, end: 20001212

REACTIONS (39)
  - Arthritis bacterial [Unknown]
  - Anaemia postoperative [Unknown]
  - Dyspepsia [Unknown]
  - Oedema peripheral [Recovered/Resolved]
  - Renal failure chronic [Not Recovered/Not Resolved]
  - Tonsillectomy [Unknown]
  - QRS axis abnormal [Unknown]
  - Bundle branch block bilateral [Unknown]
  - Vitamin D decreased [Unknown]
  - Spinal osteoarthritis [Unknown]
  - Diarrhoea [Unknown]
  - Fibula fracture [Unknown]
  - Peripheral swelling [Unknown]
  - Blood thyroid stimulating hormone increased [Unknown]
  - Haematuria [Unknown]
  - Post procedural haematoma [Unknown]
  - Neuropathy peripheral [Unknown]
  - Tendon rupture [Unknown]
  - Osteoarthritis [Unknown]
  - Gait disturbance [Unknown]
  - Osteonecrosis [Unknown]
  - Fracture [Unknown]
  - Cataract operation [Unknown]
  - Joint effusion [Unknown]
  - Aspartate aminotransferase increased [Unknown]
  - Bone cyst [Unknown]
  - Calcium deficiency [Unknown]
  - Pyrexia [Unknown]
  - Femur fracture [Recovered/Resolved]
  - Intramedullary rod insertion [Unknown]
  - Osteoarthritis [Unknown]
  - Clostridium difficile colitis [Unknown]
  - Fracture [Unknown]
  - Anxiety [Unknown]
  - Hip arthroplasty [Unknown]
  - Ligament rupture [Unknown]
  - Urinary tract infection [Recovering/Resolving]
  - Depression [Unknown]
  - Rosacea [Unknown]

NARRATIVE: CASE EVENT DATE: 200006
